FAERS Safety Report 5786188-9 (Version None)
Quarter: 2008Q2

REPORT INFORMATION
  Report Type: 
  Country: None (occurrence: None)
  Receive Date: 20080624
  Receipt Date: 20080616
  Transmission Date: 20081010
  Serious: Yes (Hospitalization)
  Sender: FDA-Public Use
  Company Number: B0519105A

PATIENT
  Age: 45 Year
  Sex: Female

DRUGS (5)
  1. LAPATINIB [Suspect]
     Dosage: 1250MG PER DAY
     Route: 048
     Dates: start: 20080116
  2. CAPECITABINE [Suspect]
     Dosage: 2500MG PER DAY
     Route: 048
     Dates: start: 20080116
  3. BONEFOS [Concomitant]
     Dosage: 800MG TWICE PER DAY
     Dates: start: 20070109
  4. OXYCONTIN [Concomitant]
     Indication: PAIN
     Dosage: 40MG ALTERNATE DAYS
     Dates: start: 20070501
  5. CLEXANE [Concomitant]
     Dosage: 60MG PER DAY
     Dates: start: 20070215

REACTIONS (6)
  - APATHY [None]
  - HYPOCALCAEMIA [None]
  - HYPOKALAEMIA [None]
  - HYPOMAGNESAEMIA [None]
  - PYREXIA [None]
  - SEPTIC SHOCK [None]
